FAERS Safety Report 10932419 (Version 1)
Quarter: 2015Q1

REPORT INFORMATION
  Report Type: Spontaneous
  Country: US (occurrence: None)
  Receive Date: 20150319
  Receipt Date: 20150319
  Transmission Date: 20150721
  Serious: Yes (Other)
  Sender: FDA-Public Use
  Company Number: None

PATIENT
  Age: 63 Year
  Sex: Female
  Weight: 44.45 kg

DRUGS (1)
  1. LANTUS SOLOSTAR [Suspect]
     Active Substance: INSULIN GLARGINE
     Indication: DIABETES MELLITUS
     Dosage: 100UNIT/ML SQ@HS
     Route: 058
     Dates: start: 20140314, end: 20141230

REACTIONS (1)
  - Acute painful neuropathy of rapid glycaemic control [None]

NARRATIVE: CASE EVENT DATE: 20140515
